FAERS Safety Report 20743628 (Version 9)
Quarter: 2022Q3

REPORT INFORMATION
  Report Type: Report from Study
  Country: US (occurrence: US)
  Receive Date: 20220425
  Receipt Date: 20220922
  Transmission Date: 20221027
  Serious: Yes (Other)
  Sender: FDA-Public Use
  Company Number: US-NOVARTISTESTPH-NVSC2022US094846

PATIENT
  Sex: Male

DRUGS (2)
  1. ENTRESTO [Suspect]
     Active Substance: SACUBITRIL\VALSARTAN
     Indication: Cardiac failure
     Dosage: 1 DOSAGE FORM (49/51 MG), BID
     Route: 048
     Dates: start: 202110
  2. FARXIGA [Concomitant]
     Active Substance: DAPAGLIFLOZIN PROPANEDIOL
     Indication: Product used for unknown indication
     Dosage: UNK
     Route: 065

REACTIONS (10)
  - Dementia Alzheimer^s type [Unknown]
  - Confusional state [Unknown]
  - Memory impairment [Unknown]
  - Throat clearing [Unknown]
  - Hypoacusis [Unknown]
  - Blood pressure decreased [Unknown]
  - Fatigue [Unknown]
  - Dizziness postural [Unknown]
  - Asthenia [Unknown]
  - Product dose omission in error [Unknown]
